FAERS Safety Report 6895111-5 (Version None)
Quarter: 2010Q3

REPORT INFORMATION
  Report Type: 
  Country: None (occurrence: None)
  Receive Date: 20100708
  Receipt Date: 20091201
  Transmission Date: 20110219
  Serious: Yes (Other)
  Sender: FDA-Public Use
  Company Number: 2009260633

PATIENT
  Age: 49 Year
  Sex: Female
  Weight: 73.9 kg

DRUGS (3)
  1. CHANTIX [Suspect]
     Indication: SMOKING CESSATION THERAPY
     Dosage: 1 TABLET, ORAL
     Route: 048
     Dates: start: 20080101, end: 20090301
  2. LASIX [Concomitant]
  3. POTASSIUM (POTASSIUM) [Concomitant]

REACTIONS (3)
  - AMNESIA [None]
  - PERSONALITY DISORDER [None]
  - SELF-INJURIOUS IDEATION [None]
